FAERS Safety Report 10360113 (Version 1)
Quarter: 2014Q3

REPORT INFORMATION
  Report Type: Spontaneous
  Country: BR (occurrence: BR)
  Receive Date: 20140804
  Receipt Date: 20140804
  Transmission Date: 20150326
  Serious: Yes (Other)
  Sender: FDA-Public Use
  Company Number: BR-BAXTER-2014BAX042689

PATIENT
  Age: 43 Year

DRUGS (2)
  1. ENDOBULIN [Suspect]
     Active Substance: HUMAN IMMUNOGLOBULIN G
     Indication: IMMUNODEFICIENCY COMMON VARIABLE
     Route: 058
     Dates: start: 201406, end: 201406
  2. FEXOFENADINA [Concomitant]
     Indication: PREMEDICATION
     Route: 065

REACTIONS (1)
  - Urticaria [Recovered/Resolved]
